FAERS Safety Report 6106466-3 (Version None)
Quarter: 2009Q1

REPORT INFORMATION
  Report Type: 
  Country: None (occurrence: None)
  Receive Date: 20090306
  Receipt Date: 20090223
  Transmission Date: 20090719
  Serious: Yes (Death, Other)
  Sender: FDA-Public Use
  Company Number: US-BAXTER-2009BH002976

PATIENT
  Sex: Male

DRUGS (1)
  1. HEPARIN SODIUM INJECTION [Suspect]
     Indication: DRUG USE FOR UNKNOWN INDICATION
     Route: 065
     Dates: start: 20061101, end: 20070221

REACTIONS (9)
  - ABDOMINAL PAIN [None]
  - BLOOD PRESSURE DECREASED [None]
  - CHEST PAIN [None]
  - DEATH [None]
  - FATIGUE [None]
  - HEADACHE [None]
  - NAUSEA [None]
  - PHARYNGEAL OEDEMA [None]
  - VOMITING [None]
